APPROVED DRUG PRODUCT: GALANTAMINE HYDROBROMIDE
Active Ingredient: GALANTAMINE HYDROBROMIDE
Strength: EQ 8MG BASE
Dosage Form/Route: CAPSULE, EXTENDED RELEASE;ORAL
Application: A090900 | Product #001
Applicant: PHARMOBEDIENT CONSULTING LLC
Approved: Jan 24, 2011 | RLD: No | RS: No | Type: DISCN